FAERS Safety Report 8988114 (Version 1)
Quarter: 2012Q4

REPORT INFORMATION
  Report Type: 
  Country: DK (occurrence: FR)
  Receive Date: 20121227
  Receipt Date: 20121227
  Transmission Date: 20130627
  Serious: Yes (Hospitalization)
  Sender: FDA-Public Use
  Company Number: FR-FRI-1000041246

PATIENT
  Age: 84 Year
  Sex: Female

DRUGS (8)
  1. ESCITALOPRAM [Suspect]
     Route: 048
  2. MABTHERA [Suspect]
     Route: 042
     Dates: start: 2010, end: 2010
  3. MABTHERA [Suspect]
     Route: 042
     Dates: start: 20120709, end: 20120711
  4. APRANAX [Suspect]
     Route: 048
     Dates: start: 2011
  5. CORTANCYL [Suspect]
     Dosage: 20 mg
     Route: 048
  6. OROKEN [Concomitant]
     Dosage: 100 mg QOD
     Route: 048
  7. PANTOPRAZOLE [Concomitant]
     Dosage: 20 mg
     Route: 048
  8. DOLIPRANE [Concomitant]
     Dosage: 4000 mg
     Route: 048

REACTIONS (3)
  - Hypertension [Not Recovered/Not Resolved]
  - Intracranial haematoma [Not Recovered/Not Resolved]
  - Hypertensive angiopathy [Not Recovered/Not Resolved]
